FAERS Safety Report 5258486-9 (Version None)
Quarter: 2007Q1

REPORT INFORMATION
  Report Type: 
  Country: None (occurrence: None)
  Receive Date: 20070308
  Receipt Date: 20070228
  Transmission Date: 20070707
  Serious: Yes (Death, Hospitalization)
  Sender: FDA-Public Use
  Company Number: IT-AVENTIS-200711424GDDC

PATIENT
  Age: 68 Year
  Sex: Male

DRUGS (4)
  1. TAXOTERE [Suspect]
     Indication: PROSTATE CANCER
     Route: 042
     Dates: start: 20070129, end: 20070212
  2. ENDOXAN [Suspect]
     Indication: PROSTATE CANCER
     Route: 048
     Dates: start: 20070129, end: 20070212
  3. DELTACORTENE [Concomitant]
  4. CLEXANE [Concomitant]
     Indication: THROMBOSIS

REACTIONS (2)
  - CEREBRAL HAEMORRHAGE [None]
  - DEATH [None]
